FAERS Safety Report 9025536 (Version 2)
Quarter: 2013Q1

REPORT INFORMATION
  Report Type: Spontaneous
  Country: PH (occurrence: PH)
  Receive Date: 20130122
  Receipt Date: 20130124
  Transmission Date: 20140127
  Serious: Yes (Death, Hospitalization)
  Sender: FDA-Public Use
  Company Number: PH-MERCK-1301PHL009403

PATIENT
  Age: 70 Year
  Sex: Female

DRUGS (4)
  1. JANUMET [Suspect]
     Indication: DIABETES MELLITUS
     Dosage: 1 DF, QD
     Dates: start: 201211, end: 20121225
  2. LOSARTAN POTASSIUM [Concomitant]
     Indication: CARDIAC DISORDER
  3. AMLODIPINE [Concomitant]
     Indication: CARDIAC DISORDER
  4. GLIMEPIRIDE [Concomitant]
     Indication: DIABETES MELLITUS
     Dosage: 2 MG, QAM

REACTIONS (6)
  - Death [Fatal]
  - Asthenia [Fatal]
  - Thrombosis [Recovering/Resolving]
  - Wound [Recovering/Resolving]
  - Blister [Recovering/Resolving]
  - Decreased appetite [Unknown]
